FAERS Safety Report 23158699 (Version 2)
Quarter: 2023Q4

REPORT INFORMATION
  Report Type: Spontaneous
  Country: NL (occurrence: NL)
  Receive Date: 20231108
  Receipt Date: 20231115
  Transmission Date: 20240110
  Serious: Yes (Death)
  Sender: FDA-Public Use
  Company Number: NL-002147023-NVSC2023NL237986

PATIENT
  Age: 3 Month
  Sex: Male
  Weight: 4.038 kg

DRUGS (1)
  1. ZOLGENSMA [Suspect]
     Active Substance: ONASEMNOGENE ABEPARVOVEC-XIOI
     Indication: Spinal muscular atrophy
     Dosage: 24.8 ML, ONCE/SINGLE
     Route: 042
     Dates: start: 20230602, end: 20230602

REACTIONS (4)
  - Drug ineffective [Fatal]
  - Muscular weakness [Fatal]
  - Respiratory failure [Fatal]
  - Spinal muscular atrophy [Fatal]
